FAERS Safety Report 7691295-X (Version None)
Quarter: 2011Q3

REPORT INFORMATION
  Report Type: 
  Country: None (occurrence: None)
  Receive Date: 20110818
  Receipt Date: 20110808
  Transmission Date: 20111222
  Serious: Yes (Other)
  Sender: FDA-Public Use
  Company Number: FR-JNJFOC-20110800450

PATIENT
  Age: 20 Year
  Sex: Male
  Weight: 65 kg

DRUGS (5)
  1. REMICADE [Suspect]
     Indication: CROHN'S DISEASE
     Dosage: TOTAL 4 INFUSIONS
     Route: 042
     Dates: start: 20110505
  2. REMICADE [Suspect]
     Dosage: 5TH INFUSION
     Route: 042
     Dates: start: 20110726
  3. REMICADE [Suspect]
     Route: 042
     Dates: start: 20110517
  4. REMICADE [Suspect]
     Route: 042
     Dates: start: 20110615
  5. HYDROCORTISONE [Concomitant]
     Indication: PREMEDICATION
     Route: 042
     Dates: start: 20110726

REACTIONS (5)
  - INFUSION RELATED REACTION [None]
  - HYPERSENSITIVITY [None]
  - RESPIRATORY DISORDER [None]
  - OXYGEN SATURATION DECREASED [None]
  - CHEST DISCOMFORT [None]
